FAERS Safety Report 8547772 (Version 4)
Quarter: 2013Q3

REPORT INFORMATION
  Report Type: Report from Study
  Country: AU (occurrence: AU)
  Receive Date: 20120504
  Receipt Date: 20130816
  Transmission Date: 20140515
  Serious: Yes (Other)
  Sender: FDA-Public Use
  Company Number: AU-ROCHE-1065127

PATIENT
  Age: 84 Year
  Sex: Female

DRUGS (4)
  1. RANIBIZUMAB [Suspect]
     Indication: AGE-RELATED MACULAR DEGENERATION
     Route: 050
     Dates: start: 201112
  2. RANIBIZUMAB [Suspect]
     Route: 050
     Dates: start: 201202
  3. RANIBIZUMAB [Suspect]
     Route: 050
     Dates: start: 201203
  4. RANIBIZUMAB [Suspect]
     Route: 050
     Dates: start: 201205

REACTIONS (9)
  - Colon cancer [Not Recovered/Not Resolved]
  - Retinal pigment epithelial tear [Not Recovered/Not Resolved]
  - Ocular discomfort [Not Recovered/Not Resolved]
  - Dry eye [Not Recovered/Not Resolved]
  - Eyelid cyst [Unknown]
  - Dry mouth [Unknown]
  - Eye irritation [Not Recovered/Not Resolved]
  - Drug ineffective [Unknown]
  - Maculopathy [Unknown]
